FAERS Safety Report 23609693 (Version 1)
Quarter: 2024Q1

REPORT INFORMATION
  Report Type: Spontaneous
  Country: US (occurrence: US)
  Receive Date: 20240308
  Receipt Date: 20240308
  Transmission Date: 20240410
  Serious: No
  Sender: FDA-Public Use
  Company Number: US-AMGEN-USASP2024046440

PATIENT
  Age: 65 Year
  Sex: Female

DRUGS (2)
  1. KYPROLIS [Suspect]
     Active Substance: CARFILZOMIB
     Indication: Plasma cell myeloma
     Dosage: 138 MILLIGRAM
     Route: 065
     Dates: start: 20240116, end: 2024
  2. KYPROLIS [Suspect]
     Active Substance: CARFILZOMIB
     Dosage: 130 MILLIGRAM
     Route: 065
     Dates: start: 2024

REACTIONS (1)
  - Weight decreased [Unknown]

NARRATIVE: CASE EVENT DATE: 20240229
